FAERS Safety Report 6544304-5 (Version None)
Quarter: 2010Q1

REPORT INFORMATION
  Report Type: 
  Country: None (occurrence: None)
  Receive Date: 20100120
  Receipt Date: 20100110
  Transmission Date: 20100710
  Serious: Yes (Other)
  Sender: FDA-Public Use
  Company Number: US-ABBOTT-10P-163-0618498-00

PATIENT
  Sex: Female
  Weight: 61.744 kg

DRUGS (3)
  1. HUMIRA [Suspect]
     Indication: JUVENILE ARTHRITIS
     Dates: start: 20091101, end: 20100101
  2. DICLOFENAC SODIUM [Concomitant]
     Indication: OEDEMA PERIPHERAL
     Dates: start: 20080101
  3. UNKNOWN MEDICATION [Concomitant]
     Indication: ENURESIS

REACTIONS (7)
  - EYE SWELLING [None]
  - INJECTION SITE ERYTHEMA [None]
  - INJECTION SITE SWELLING [None]
  - INJECTION SITE URTICARIA [None]
  - OROPHARYNGEAL PAIN [None]
  - PRURITUS [None]
  - RASH [None]
